FAERS Safety Report 14280831 (Version 1)
Quarter: 2017Q4

REPORT INFORMATION
  Report Type: Spontaneous
  Country: US (occurrence: None)
  Receive Date: 20171213
  Receipt Date: 20171213
  Transmission Date: 20180321
  Serious: Yes (Hospitalization)
  Sender: FDA-Public Use
  Company Number: None

PATIENT
  Age: 58 Year
  Sex: Female
  Weight: 132.45 kg

DRUGS (1)
  1. PRAZOSIN. [Suspect]
     Active Substance: PRAZOSIN
     Indication: NIGHTMARE
     Route: 048
     Dates: start: 20171124, end: 20171126

REACTIONS (6)
  - Flushing [None]
  - Supraventricular tachycardia [None]
  - Tachycardia [None]
  - Dizziness [None]
  - Blood pressure diastolic increased [None]
  - Dyspnoea [None]

NARRATIVE: CASE EVENT DATE: 20171125
